FAERS Safety Report 24587358 (Version 1)
Quarter: 2024Q4

REPORT INFORMATION
  Report Type: Spontaneous
  Country: GB (occurrence: GB)
  Receive Date: 20241107
  Receipt Date: 20241107
  Transmission Date: 20250115
  Serious: Yes (Other)
  Sender: AUROBINDO
  Company Number: GB-MHRA-TPP4850540C9095532YC1729678891393

PATIENT
  Age: 56 Year
  Sex: Male
  Weight: 91 kg

DRUGS (8)
  1. LEVETIRACETAM [Suspect]
     Active Substance: LEVETIRACETAM
     Indication: Ill-defined disorder
     Dosage: 250 MILLIGRAM
     Route: 065
  2. NITROFURANTOIN [Concomitant]
     Active Substance: NITROFURANTOIN
     Indication: Ill-defined disorder
     Dosage: 1 DOSAGE FORM, DAILY FOR 7 DAYS
     Route: 065
     Dates: start: 20240916
  3. LACOSAMIDE [Concomitant]
     Active Substance: LACOSAMIDE
     Indication: Ill-defined disorder
     Dosage: 1 DOSAGE FORM, TWO TIMES A DAY
     Route: 065
     Dates: start: 20241008
  4. NYSTATIN [Concomitant]
     Active Substance: NYSTATIN
     Indication: Ill-defined disorder
     Dosage: 1 MILLILITER DROPPED INTO THE MOUTH FOUR TIMES/DAY
     Route: 065
     Dates: start: 20241008
  5. CLOBAZAM [Concomitant]
     Active Substance: CLOBAZAM
     Indication: Ill-defined disorder
     Dosage: UNK
     Route: 065
  6. TEGRETOL [Concomitant]
     Active Substance: CARBAMAZEPINE
     Indication: Ill-defined disorder
     Dosage: 2 DOSAGE FORM, AT BED TIME
     Route: 065
     Dates: start: 20230710
  7. CHOLECALCIFEROL [Concomitant]
     Active Substance: CHOLECALCIFEROL
     Indication: Ill-defined disorder
     Dosage: 1 DOSAGE FORM, DAILY
     Route: 065
     Dates: start: 20240216
  8. PHENYTOIN SODIUM [Concomitant]
     Active Substance: PHENYTOIN SODIUM
     Indication: Ill-defined disorder
     Dosage: 1 DOSAGE FORM, DAILY
     Route: 065
     Dates: start: 20240704

REACTIONS (2)
  - Mood swings [Recovered/Resolved]
  - Abdominal discomfort [Recovered/Resolved]
